FAERS Safety Report 23423745 (Version 2)
Quarter: 2025Q2

REPORT INFORMATION
  Report Type: Spontaneous
  Country: US (occurrence: US)
  Receive Date: 20240119
  Receipt Date: 20250618
  Transmission Date: 20250717
  Serious: No
  Sender: SANOFI AVENTIS
  Company Number: US-SA-SAC20240117000175

PATIENT
  Sex: Female
  Weight: 58.967 kg

DRUGS (1)
  1. DUPIXENT [Suspect]
     Active Substance: DUPILUMAB
     Indication: Dermatitis atopic
     Dosage: 300 MG, QOW
     Route: 058

REACTIONS (11)
  - Skin haemorrhage [Unknown]
  - Furuncle [Unknown]
  - Cough [Unknown]
  - Rhinorrhoea [Unknown]
  - Respiratory disorder [Unknown]
  - Dry skin [Recovering/Resolving]
  - Pruritus [Recovering/Resolving]
  - Dry eye [Unknown]
  - Injection site swelling [Unknown]
  - Injection site pain [Unknown]
  - Intentional dose omission [Unknown]
